FAERS Safety Report 21919266 (Version 1)
Quarter: 2023Q1

REPORT INFORMATION
  Report Type: Spontaneous
  Country: US (occurrence: None)
  Receive Date: 20230126
  Receipt Date: 20230126
  Transmission Date: 20230417
  Serious: Yes (Other)
  Sender: FDA-Public Use
  Company Number: None

PATIENT
  Age: 23 Year
  Sex: Male
  Weight: 99 kg

DRUGS (3)
  1. SEROQUEL [Suspect]
     Active Substance: QUETIAPINE FUMARATE
     Indication: Schizophrenia
     Dosage: FREQUENCY : TWICE A DAY;?
     Route: 048
     Dates: end: 20080612
  2. ABILIFY [Suspect]
     Active Substance: ARIPIPRAZOLE
  3. RISPERDAL [Suspect]
     Active Substance: RISPERIDONE

REACTIONS (4)
  - Sleep disorder [None]
  - Amnesia [None]
  - Muscle disorder [None]
  - Brain injury [None]

NARRATIVE: CASE EVENT DATE: 20040113
